FAERS Safety Report 25021319 (Version 1)
Quarter: 2025Q1

REPORT INFORMATION
  Report Type: Spontaneous
  Country: US (occurrence: US)
  Receive Date: 20250228
  Receipt Date: 20250228
  Transmission Date: 20250409
  Serious: No
  Sender: STRIDES
  Company Number: US-STRIDES ARCOLAB LIMITED-2025SP001828

PATIENT
  Age: 35 Year
  Sex: Female

DRUGS (11)
  1. TACROLIMUS [Suspect]
     Active Substance: TACROLIMUS
     Indication: Topical steroid withdrawal reaction
     Route: 065
  2. TACROLIMUS [Suspect]
     Active Substance: TACROLIMUS
     Indication: Erythema
  3. CYCLOSPORINE [Suspect]
     Active Substance: CYCLOSPORINE
     Indication: Topical steroid withdrawal reaction
     Route: 065
  4. CYCLOSPORINE [Suspect]
     Active Substance: CYCLOSPORINE
     Indication: Erythema
  5. TRIAMCINOLONE [Concomitant]
     Active Substance: TRIAMCINOLONE
     Indication: Steroid therapy
     Route: 061
  6. TRIAMCINOLONE [Concomitant]
     Active Substance: TRIAMCINOLONE
     Route: 061
  7. TRIAMCINOLONE [Concomitant]
     Active Substance: TRIAMCINOLONE
     Route: 065
  8. PIMECROLIMUS [Concomitant]
     Active Substance: PIMECROLIMUS
     Indication: Topical steroid withdrawal reaction
     Route: 065
  9. PIMECROLIMUS [Concomitant]
     Active Substance: PIMECROLIMUS
     Indication: Erythema
  10. DUPILUMAB [Concomitant]
     Active Substance: DUPILUMAB
     Indication: Topical steroid withdrawal reaction
     Route: 065
  11. DUPILUMAB [Concomitant]
     Active Substance: DUPILUMAB
     Indication: Erythema

REACTIONS (1)
  - Off label use [Unknown]
